FAERS Safety Report 6864452-X (Version None)
Quarter: 2010Q3

REPORT INFORMATION
  Report Type: 
  Country: None (occurrence: None)
  Receive Date: 20100721
  Receipt Date: 20080325
  Transmission Date: 20110219
  Serious: No
  Sender: FDA-Public Use
  Company Number: US-PFIZER INC-2008028051

PATIENT
  Sex: Female
  Weight: 54.5 kg

DRUGS (2)
  1. CHANTIX [Suspect]
     Indication: SMOKING CESSATION THERAPY
     Dates: start: 20080131
  2. ALL OTHER THERAPEUTIC PRODUCTS [Concomitant]

REACTIONS (5)
  - AMNESIA [None]
  - HEADACHE [None]
  - NAUSEA [None]
  - UNEVALUABLE EVENT [None]
  - WEIGHT INCREASED [None]
